FAERS Safety Report 9358651 (Version 1)
Quarter: 2013Q2

REPORT INFORMATION
  Report Type: Spontaneous
  Country: US (occurrence: US)
  Receive Date: 20130620
  Receipt Date: 20130620
  Transmission Date: 20140414
  Serious: Yes (Other)
  Sender: FDA-Public Use
  Company Number: US-ASTRAZENECA-2013SE47313

PATIENT
  Sex: 0

DRUGS (3)
  1. BRILINTA [Suspect]
     Indication: ACUTE CORONARY SYNDROME
     Route: 048
     Dates: start: 20130522, end: 20130524
  2. DRUG ELUDING STENT BOSTON SCIENTIFID PROMUS [Suspect]
     Route: 065
     Dates: start: 20130522
  3. ASPIRIN [Concomitant]

REACTIONS (1)
  - Thrombosis in device [Unknown]
